FAERS Safety Report 14955006 (Version 1)
Quarter: 2018Q2

REPORT INFORMATION
  Report Type: Spontaneous
  Country: FR (occurrence: FR)
  Receive Date: 20180531
  Receipt Date: 20180531
  Transmission Date: 20180711
  Serious: Yes (Other)
  Sender: FDA-Public Use
  Company Number: FR-MERCK KGAA-2048728

PATIENT
  Age: 54 Year
  Sex: Male

DRUGS (1)
  1. NOVOTHYROX [Suspect]
     Active Substance: LEVOTHYROXINE SODIUM
     Indication: PRODUCT USED FOR UNKNOWN INDICATION
     Dates: start: 2017, end: 2017

REACTIONS (16)
  - Abdominal pain [Recovered/Resolved]
  - Fatigue [Recovered/Resolved]
  - Disturbance in attention [Recovered/Resolved]
  - Social avoidant behaviour [Recovered/Resolved]
  - Headache [Recovered/Resolved]
  - Arthralgia [Recovered/Resolved]
  - Apathy [Recovered/Resolved]
  - Insomnia [Recovered/Resolved]
  - Complicated fracture [Recovered/Resolved]
  - Myalgia [Recovered/Resolved]
  - Anxiety [Recovered/Resolved]
  - Loss of personal independence in daily activities [Recovered/Resolved]
  - General physical health deterioration [Recovered/Resolved]
  - Asthenia [Recovered/Resolved]
  - Abdominal pain upper [Recovered/Resolved]
  - Decreased interest [None]

NARRATIVE: CASE EVENT DATE: 2017
